FAERS Safety Report 8852788 (Version 1)
Quarter: 2012Q4

REPORT INFORMATION
  Report Type: 
  Country: US (occurrence: US)
  Receive Date: 20121022
  Receipt Date: 20121022
  Transmission Date: 20130627
  Serious: Yes (Other)
  Sender: FDA-Public Use
  Company Number: US-ASTRAZENECA-2012SE78975

PATIENT
  Age: 57 Year
  Sex: Male

DRUGS (5)
  1. NEXIUM [Suspect]
     Route: 048
  2. CRESTOR [Suspect]
     Route: 048
  3. ASPIRIN [Suspect]
     Route: 048
  4. ALLOPURINOL [Concomitant]
  5. LEXAPRO [Concomitant]

REACTIONS (4)
  - Myocardial infarction [Unknown]
  - Gout [Unknown]
  - Drug intolerance [Unknown]
  - Drug effect decreased [Unknown]
